FAERS Safety Report 12409415 (Version 2)
Quarter: 2016Q2

REPORT INFORMATION
  Report Type: Report from Study
  Country: HU (occurrence: HU)
  Receive Date: 20160526
  Receipt Date: 20160628
  Transmission Date: 20160815
  Serious: Yes (Hospitalization)
  Sender: FDA-Public Use
  Company Number: HU-ABBVIE-16P-076-1576316-00

PATIENT
  Age: 62 Year
  Sex: Male
  Weight: 80 kg

DRUGS (4)
  1. BISOPROLOL [Concomitant]
     Active Substance: BISOPROLOL
     Indication: HYPERTENSION
     Dosage: HALF TABLET IN THE MORNING
     Route: 048
  2. PORTIRON [Concomitant]
     Indication: HYPERTENSION
     Route: 048
  3. MERCKFORMIN [Concomitant]
     Active Substance: METFORMIN HYDROCHLORIDE
     Indication: DIABETES MELLITUS
     Route: 048
  4. DUODOPA [Suspect]
     Active Substance: CARBIDOPA\LEVODOPA
     Indication: PARKINSON^S DISEASE
     Dosage: MORNING DOSE: 7.0ML; CONTINUOUS DOSE: 3.2 ML/H; EXTRA DOSE: 1.5ML
     Route: 050
     Dates: start: 20141205

REACTIONS (9)
  - Depression [Recovering/Resolving]
  - Eczema [Not Recovered/Not Resolved]
  - Hypogeusia [Unknown]
  - Decreased appetite [Recovering/Resolving]
  - Erythema [Not Recovered/Not Resolved]
  - Parkinson^s disease [Not Recovered/Not Resolved]
  - Dysphagia [Unknown]
  - Weight decreased [Not Recovered/Not Resolved]
  - Skin exfoliation [Not Recovered/Not Resolved]

NARRATIVE: CASE EVENT DATE: 201506
